FAERS Safety Report 23039099 (Version 1)
Quarter: 2023Q4

REPORT INFORMATION
  Report Type: Spontaneous
  Country: IT (occurrence: IT)
  Receive Date: 20231006
  Receipt Date: 20231006
  Transmission Date: 20240109
  Serious: Yes (Life-Threatening)
  Sender: FDA-Public Use
  Company Number: None

PATIENT
  Age: 40 Year
  Sex: Female

DRUGS (3)
  1. XANAX [Suspect]
     Active Substance: ALPRAZOLAM
     Indication: Product used for unknown indication
     Dosage: 10 MG (TAKEN 20 TABLETS OF XANAX OF 0.50 MG)
     Route: 048
     Dates: start: 20230604, end: 20230604
  2. VALPROATE SODIUM [Suspect]
     Active Substance: VALPROATE SODIUM
     Indication: Product used for unknown indication
     Dosage: 3000 MG (TAKEN 10 TABLETS OF DEPAKIN OF 300 MG)
     Route: 048
     Dates: start: 20230604, end: 20230604
  3. TACHIPIRINA [Suspect]
     Active Substance: ACETAMINOPHEN
     Indication: Product used for unknown indication
     Dosage: 5000 MG (TAKEN 5 TABLETS OF TACHYPIRIN OF 1000 MG)
     Route: 048
     Dates: start: 20230604, end: 20230604

REACTIONS (3)
  - Toxicity to various agents [Recovering/Resolving]
  - Drug abuse [Recovering/Resolving]
  - Headache [Recovering/Resolving]

NARRATIVE: CASE EVENT DATE: 20230604
